FAERS Safety Report 11417393 (Version 2)
Quarter: 2015Q3

REPORT INFORMATION
  Report Type: Report from Study
  Country: BR (occurrence: BR)
  Receive Date: 20150825
  Receipt Date: 20150921
  Transmission Date: 20151125
  Serious: Yes (Other)
  Sender: FDA-Public Use
  Company Number: PHHY2015BR101013

PATIENT
  Age: 64 Year
  Sex: Female
  Weight: 100 kg

DRUGS (1)
  1. SANDOSTATIN LAR DEPOT [Suspect]
     Active Substance: OCTREOTIDE ACETATE
     Indication: PITUITARY TUMOUR
     Dosage: 1 DF, QMO
     Route: 030

REACTIONS (5)
  - Hyperhidrosis [Unknown]
  - Fall [Recovering/Resolving]
  - Malaise [Recovered/Resolved]
  - Femur fracture [Recovering/Resolving]
  - Fatigue [Unknown]
